FAERS Safety Report 6965323-0 (Version None)
Quarter: 2010Q3

REPORT INFORMATION
  Report Type: 
  Country: None (occurrence: None)
  Receive Date: 20100903
  Receipt Date: 20100827
  Transmission Date: 20110219
  Serious: Yes (Other)
  Sender: FDA-Public Use
  Company Number: ES-JNJFOC-20100900051

PATIENT
  Age: 8 Decade
  Sex: Male

DRUGS (1)
  1. CAELYX [Suspect]
     Indication: BLADDER CANCER
     Route: 043

REACTIONS (2)
  - HEPATITIS C [None]
  - OFF LABEL USE [None]
